FAERS Safety Report 10229753 (Version 2)
Quarter: 2014Q2

REPORT INFORMATION
  Report Type: Spontaneous
  Country: US (occurrence: US)
  Receive Date: 20140611
  Receipt Date: 20140611
  Transmission Date: 20141212
  Serious: Yes (Other)
  Sender: FDA-Public Use
  Company Number: PHEH2014US000622

PATIENT
  Sex: Female
  Weight: 147 kg

DRUGS (5)
  1. RITALIN [Suspect]
     Indication: MULTIPLE SCLEROSIS
     Dosage: UNK UKN, UNK
     Route: 048
     Dates: start: 2010, end: 2010
  2. RITALIN [Suspect]
     Indication: FATIGUE
  3. COPAXONE [Concomitant]
     Dosage: UNK UKN, UNK
  4. NEURONTIN [Concomitant]
     Indication: PAIN
     Dosage: 300 MG, TID
     Route: 048
  5. EFFEXOR [Concomitant]
     Indication: ANXIETY
     Dosage: 37.5 MG, BID
     Route: 048

REACTIONS (2)
  - Convulsion [Recovered/Resolved]
  - Drug hypersensitivity [Unknown]
